FAERS Safety Report 24311952 (Version 1)
Quarter: 2024Q3

REPORT INFORMATION
  Report Type: Spontaneous
  Country: US (occurrence: None)
  Receive Date: 20240911
  Receipt Date: 20240911
  Transmission Date: 20241017
  Serious: Yes (unspecified)
  Sender: Public
  Company Number: None

PATIENT
  Age: 10 Year
  Sex: Female
  Weight: 39.7 kg

DRUGS (1)
  1. ASPARLAS [Suspect]
     Active Substance: CALASPARGASE PEGOL-MKNL
     Indication: Acute lymphocytic leukaemia
     Route: 041
     Dates: start: 20240620

REACTIONS (7)
  - Pain in extremity [None]
  - Arthralgia [None]
  - Back pain [None]
  - Pancreatitis acute [None]
  - Hepatic steatosis [None]
  - Haemorrhage [None]
  - Pancreatitis necrotising [None]

NARRATIVE: CASE EVENT DATE: 20240826
